FAERS Safety Report 21339153 (Version 9)
Quarter: 2023Q4

REPORT INFORMATION
  Report Type: Report from Study
  Country: US (occurrence: US)
  Receive Date: 20220915
  Receipt Date: 20231218
  Transmission Date: 20240109
  Serious: Yes (Hospitalization, Other)
  Sender: FDA-Public Use
  Company Number: US-NOVARTISTESTPH-NVSC2022US207957

PATIENT
  Sex: Female

DRUGS (4)
  1. ENTRESTO [Suspect]
     Active Substance: SACUBITRIL\VALSARTAN
     Indication: Product used for unknown indication
     Dosage: 1 DOSAGE FORM (24/26MG), BID
     Route: 048
     Dates: start: 20220908
  2. ENTRESTO [Suspect]
     Active Substance: SACUBITRIL\VALSARTAN
     Dosage: 1 DOSAGE FORM (49/51 MG), BID
     Route: 048
  3. LABETALOL [Suspect]
     Active Substance: LABETALOL\LABETALOL HYDROCHLORIDE
     Indication: Product used for unknown indication
     Dosage: UNK
     Route: 065
  4. COUMADIN [Concomitant]
     Active Substance: WARFARIN SODIUM
     Indication: Product used for unknown indication
     Dosage: UNK (SINCE BEFORE ENTRESTO BEGAN)
     Route: 065

REACTIONS (9)
  - Diarrhoea [Unknown]
  - Hypertension [Unknown]
  - Cardiac failure [Unknown]
  - Bradykinesia [Unknown]
  - Insomnia [Unknown]
  - Pain in extremity [Unknown]
  - Dry mouth [Unknown]
  - COVID-19 [Unknown]
  - Stress [Unknown]
